FAERS Safety Report 12592138 (Version 1)
Quarter: 2016Q3

REPORT INFORMATION
  Report Type: Spontaneous
  Country: US (occurrence: None)
  Receive Date: 20160722
  Receipt Date: 20160722
  Transmission Date: 20161109
  Serious: Yes (Other)
  Sender: FDA-Public Use
  Company Number: GB-ALSI-201600200

PATIENT
  Sex: Male

DRUGS (1)
  1. LIQUID OXYGEN [Suspect]
     Active Substance: OXYGEN
     Indication: ACCIDENTAL EXPOSURE TO PRODUCT
     Route: 003

REACTIONS (3)
  - Device leakage [None]
  - Accidental exposure to product [None]
  - Application site vesicles [None]
